FAERS Safety Report 14408014 (Version 1)
Quarter: 2018Q1

REPORT INFORMATION
  Report Type: Spontaneous
  Country: US (occurrence: US)
  Receive Date: 20180118
  Receipt Date: 20180118
  Transmission Date: 20180509
  Serious: No
  Sender: FDA-Public Use
  Company Number: US-DEPOMED, INC.-US-2017DEP001531

PATIENT

DRUGS (2)
  1. NUCYNTA [Suspect]
     Active Substance: TAPENTADOL HYDROCHLORIDE
     Dosage: 75 MG, UNK, 2-3 TIMES DAILY
  2. NUCYNTA [Suspect]
     Active Substance: TAPENTADOL HYDROCHLORIDE
     Indication: INTERVERTEBRAL DISC DEGENERATION
     Dosage: 50 MG, UNK, 2-3 TIMES DAILY
     Dates: start: 2015

REACTIONS (2)
  - Product use in unapproved indication [Recovered/Resolved]
  - Drug dose titration not performed [Not Recovered/Not Resolved]

NARRATIVE: CASE EVENT DATE: 2015
